FAERS Safety Report 8512081-4 (Version None)
Quarter: 2012Q2

REPORT INFORMATION
  Report Type: 
  Country: None (occurrence: None)
  Receive Date: 20120405
  Receipt Date: 20080703
  Transmission Date: 20120825
  Serious: Yes (Hospitalization)
  Sender: FDA-Public Use
  Company Number: PHEH2008US05977

PATIENT

DRUGS (1)
  1. RECLAST [Suspect]
     Dosage: 5 MG, 1X YEAR, INFUSION

REACTIONS (3)
  - BONE PAIN [None]
  - OEDEMA [None]
  - SWELLING [None]
